FAERS Safety Report 4385811-3 (Version None)
Quarter: 2004Q2

REPORT INFORMATION
  Report Type: 
  Country: None (occurrence: None)
  Receive Date: 20040628
  Receipt Date: 20030402
  Transmission Date: 20050107
  Serious: Yes (Hospitalization)
  Sender: FDA-Public Use
  Company Number: BR-ROCHE-335164

PATIENT
  Age: 30 Year
  Sex: Male
  Weight: 43.5 kg

DRUGS (22)
  1. DACLIZUMAB [Suspect]
     Route: 042
     Dates: start: 20030226, end: 20030226
  2. DACLIZUMAB [Suspect]
     Route: 042
     Dates: start: 20030312, end: 20030423
  3. MYCOPHENOLATE MOFETIL [Suspect]
     Route: 048
     Dates: start: 20030226
  4. MYCOPHENOLATE MOFETIL [Suspect]
     Route: 048
     Dates: start: 20030329
  5. MYCOPHENOLATE MOFETIL [Suspect]
     Route: 048
  6. MYCOPHENOLATE MOFETIL [Suspect]
     Route: 048
     Dates: start: 20030709
  7. CYCLOSPORINE [Suspect]
     Route: 048
     Dates: start: 20030226
  8. CYCLOSPORINE [Suspect]
     Dosage: 100 MG MORNING, 75 MG AT NIGHT.
     Route: 048
     Dates: start: 20030327
  9. CYCLOSPORINE [Suspect]
     Route: 048
     Dates: start: 20030528
  10. CYCLOSPORINE [Suspect]
     Route: 048
     Dates: start: 20030529
  11. PREDNISONE [Suspect]
     Dosage: FREQUENCY ^MID^.
     Route: 048
     Dates: start: 20030228
  12. PREDNISONE [Suspect]
     Route: 048
     Dates: start: 20030301
  13. PREDNISONE [Suspect]
     Route: 048
     Dates: start: 20030312
  14. PREDNISONE [Suspect]
     Route: 048
     Dates: start: 20030319
  15. PREDNISONE [Suspect]
     Dosage: FREQUENCY ^MID^.
     Route: 048
     Dates: start: 20030327
  16. PREDNISONE [Suspect]
     Dosage: FREQUENCY ^MID^.
     Route: 048
     Dates: start: 20030329
  17. PREDNISONE [Suspect]
     Dosage: FREQUENCY ^MID^.
     Route: 048
     Dates: start: 20030528
  18. METHYLPREDNISOLONE [Suspect]
     Indication: DRUG USE FOR UNKNOWN INDICATION
     Route: 065
     Dates: start: 20030226
  19. METHYLPREDNISOLONE [Suspect]
     Route: 065
     Dates: start: 20030227, end: 20030228
  20. CAPTOPRIL [Concomitant]
     Route: 048
  21. CLONIDINE HCL [Concomitant]
     Route: 048
     Dates: start: 20030226, end: 20030329
  22. RANITIDINE [Concomitant]
     Route: 048
     Dates: start: 20030228, end: 20040303

REACTIONS (8)
  - ABDOMINAL PAIN [None]
  - ASTHENIA [None]
  - DEHYDRATION [None]
  - DIARRHOEA [None]
  - HEPATIC NEOPLASM [None]
  - HEPATITIS [None]
  - LYMPHADENOPATHY [None]
  - MARKEDLY REDUCED DIETARY INTAKE [None]
